FAERS Safety Report 6508287-6 (Version None)
Quarter: 2009Q4

REPORT INFORMATION
  Report Type: 
  Country: None (occurrence: None)
  Receive Date: 20091221
  Receipt Date: 20090611
  Transmission Date: 20100525
  Serious: No
  Sender: FDA-Public Use
  Company Number: US-ASTRAZENECA-2005UW03281

PATIENT
  Age: 86 Year
  Sex: Female
  Weight: 70.3 kg

DRUGS (8)
  1. CRESTOR [Suspect]
     Indication: BLOOD CHOLESTEROL INCREASED
     Route: 048
  2. CRESTOR [Suspect]
     Route: 048
  3. CRESTOR [Suspect]
     Route: 048
     Dates: start: 20081101
  4. CRESTOR [Suspect]
     Route: 048
  5. ESTROGEN [Concomitant]
  6. VITAMINS [Concomitant]
  7. CARDIZEM [Concomitant]
  8. DIOVAN [Concomitant]

REACTIONS (6)
  - ARTHRALGIA [None]
  - BLOOD CHOLESTEROL INCREASED [None]
  - CONSTIPATION [None]
  - DYSGEUSIA [None]
  - MUSCLE SPASMS [None]
  - OEDEMA PERIPHERAL [None]
